FAERS Safety Report 7585684-1 (Version None)
Quarter: 2011Q2

REPORT INFORMATION
  Report Type: 
  Country: None (occurrence: None)
  Receive Date: 20110603
  Receipt Date: 20110318
  Transmission Date: 20111010
  Serious: No
  Sender: FDA-Public Use
  Company Number: 201103046

PATIENT
  Age: 74 Year
  Sex: Female
  Weight: 74.8435 kg

DRUGS (5)
  1. ZOCOR [Concomitant]
  2. ASPIRIN [Concomitant]
  3. XIAFLEX [Suspect]
     Indication: DUPUYTREN'S CONTRACTURE
     Dosage: 1 IN 1 D, INTRALESIONAL
     Route: 026
     Dates: start: 20110314, end: 20110314
  4. NORVASC [Concomitant]
  5. SYNTHROID [Concomitant]

REACTIONS (2)
  - HAEMATOMA [None]
  - PAIN IN EXTREMITY [None]
